FAERS Safety Report 7941093-4 (Version None)
Quarter: 2011Q4

REPORT INFORMATION
  Report Type: 
  Country: None (occurrence: None)
  Receive Date: 20111114
  Receipt Date: 20110722
  Transmission Date: 20120403
  Serious: Yes (Hospitalization, Other)
  Sender: FDA-Public Use
  Company Number: 2011S1000473

PATIENT
  Sex: Female
  Weight: 75 kg

DRUGS (1)
  1. CUBICIN [Suspect]
     Indication: OSTEOMYELITIS
     Dosage: 6 MG/KG
     Dates: start: 20091207, end: 20091214

REACTIONS (1)
  - RHABDOMYOLYSIS [None]
